FAERS Safety Report 23083042 (Version 1)
Quarter: 2023Q4

REPORT INFORMATION
  Report Type: Spontaneous
  Country: US (occurrence: None)
  Receive Date: 20231018
  Receipt Date: 20231018
  Transmission Date: 20240109
  Serious: Yes (Other)
  Sender: FDA-Public Use
  Company Number: None

PATIENT
  Age: 49 Year
  Sex: Female
  Weight: 54 kg

DRUGS (1)
  1. HOMEOPATHICS [Suspect]
     Active Substance: ARNICA MONTANA\CAUSTICUM\COMFREY ROOT\HOMEOPATHICS\LEDUM PALUSTRE TWIG\PSEUDOGNAPHALIUM OBTUSIFOLIUM
     Dosage: FREQUENCY : EVERY 4 HOURS;?
     Route: 047
     Dates: start: 20230901, end: 20231010

REACTIONS (3)
  - Eye disorder [None]
  - Visual impairment [None]
  - Jaundice [None]

NARRATIVE: CASE EVENT DATE: 20230927
